FAERS Safety Report 10899538 (Version 1)
Quarter: 2015Q1

REPORT INFORMATION
  Report Type: Spontaneous
  Country: CA (occurrence: CA)
  Receive Date: 20150309
  Receipt Date: 20150309
  Transmission Date: 20150721
  Serious: Yes (Death, Other)
  Sender: FDA-Public Use
  Company Number: CA-PFIZER INC-2015080664

PATIENT
  Age: 76 Year
  Sex: Male

DRUGS (15)
  1. PMS FERROUS SULFATE [Concomitant]
     Dosage: UNK, 2X/DAY IN AM AND AT DINNER
  2. SANDOZ PANTOPRAZOLE [Concomitant]
     Dosage: 1 TABLET OF 40MG, 1X/DAY IN AM
  3. XALACOM [Concomitant]
     Active Substance: LATANOPROST\TIMOLOL MALEATE
     Dosage: UNK
     Route: 047
  4. SANDOZ VALSARTAN [Concomitant]
     Dosage: 1 TABLET OF 320MG, UNK
  5. OXYGEN. [Concomitant]
     Active Substance: OXYGEN
     Dosage: UNK
  6. ONGLYZA [Concomitant]
     Active Substance: SAXAGLIPTIN HYDROCHLORIDE
     Dosage: 1 TABLET OF 5MG, 1X/DAY IN AM
  7. SANDOZ GLYBURIDE [Concomitant]
     Dosage: 1 TABLET OF 2.5MG, 1X/DAY IN THE MORNING (AM)
  8. RIVA-METFORMIN [Concomitant]
     Dosage: 500MG, 3X/DAY (AM, AT DINNER AND AT NIGHT)
  9. RIVA-OXAZEPAM [Concomitant]
     Dosage: 30 MG, 1X/DAY AT BEDTIME
  10. ASAPHEN [Concomitant]
     Active Substance: ASPIRIN
     Dosage: 1 TABLET OF 80MG, 1X/DAY IN AM
  11. PMS FUROSEMIDE [Concomitant]
     Dosage: 1 TABLET, IN AM AND AT DINNER
  12. REVATIO [Suspect]
     Active Substance: SILDENAFIL CITRATE
     Indication: PULMONARY ARTERIAL HYPERTENSION
     Dosage: 20MG/DAY
     Route: 048
     Dates: start: 20131010
  13. APO BRIMONIDINE P [Concomitant]
     Dosage: UNK
     Route: 047
  14. BISOPROLOL SANDOZ [Concomitant]
     Active Substance: BISOPROLOL
     Dosage: UNK
  15. PMS SIMVASTATIN [Concomitant]
     Dosage: 1 TABLET OF 40MG, 1X/DAY IN THE EVENING

REACTIONS (2)
  - Death [Fatal]
  - Pulmonary hypertension [Unknown]

NARRATIVE: CASE EVENT DATE: 20150301
